FAERS Safety Report 11895408 (Version 3)
Quarter: 2016Q3

REPORT INFORMATION
  Report Type: Report from Study
  Country: US (occurrence: US)
  Receive Date: 20160107
  Receipt Date: 20160714
  Transmission Date: 20161109
  Serious: Yes (Hospitalization)
  Sender: FDA-Public Use
  Company Number: US-SA-2014SA038816

PATIENT
  Age: 61 Year
  Sex: Female
  Weight: 48 kg

DRUGS (13)
  1. VITAMIN E [Concomitant]
     Active Substance: .ALPHA.-TOCOPHEROL
  2. FISH OIL [Concomitant]
     Active Substance: FISH OIL
  3. PRAVASTATIN. [Concomitant]
     Active Substance: PRAVASTATIN
     Indication: BLOOD CHOLESTEROL INCREASED
     Dosage: 20 MG
  4. AMINOPYRIDINE [Concomitant]
     Active Substance: DALFAMPRIDINE
     Indication: GAIT DISTURBANCE
     Dates: start: 20150715, end: 20150731
  5. AUBAGIO [Suspect]
     Active Substance: TERIFLUNOMIDE
     Indication: MULTIPLE SCLEROSIS
     Route: 048
     Dates: start: 20140307, end: 20150731
  6. AMPYRA [Concomitant]
     Active Substance: DALFAMPRIDINE
  7. BACLOFEN. [Concomitant]
     Active Substance: BACLOFEN
     Dosage: 1 TAB AM AND 2 TABS HS; 10MG
  8. ZINC [Concomitant]
     Active Substance: ZINC\ZINC CHLORIDE
  9. CALCIUM [Concomitant]
     Active Substance: CALCIUM
  10. AUBAGIO [Suspect]
     Active Substance: TERIFLUNOMIDE
     Indication: MULTIPLE SCLEROSIS
     Route: 048
     Dates: start: 20151201, end: 20160106
  11. OXYBUTYNIN [Concomitant]
     Active Substance: OXYBUTYNIN
     Indication: POLLAKIURIA
     Dosage: 5 MG
  12. MAGNESIUM [Concomitant]
     Active Substance: MAGNESIUM
  13. ASPIRIN. [Concomitant]
     Active Substance: ASPIRIN
     Dosage: 81 MG

REACTIONS (14)
  - Defaecation urgency [Unknown]
  - Abdominal discomfort [Unknown]
  - Unevaluable event [Not Recovered/Not Resolved]
  - Diarrhoea [Recovered/Resolved]
  - White blood cell count decreased [Recovering/Resolving]
  - Abdominal pain upper [Recovered/Resolved]
  - Diarrhoea [Recovered/Resolved]
  - Alopecia [Unknown]
  - Blood pressure increased [Recovered/Resolved]
  - Anxiety [Recovered/Resolved]
  - Discomfort [Unknown]
  - Abdominal distension [Unknown]
  - Bladder disorder [Unknown]
  - Gastrointestinal sounds abnormal [Not Recovered/Not Resolved]

NARRATIVE: CASE EVENT DATE: 2014
